FAERS Safety Report 4348155-1 (Version None)
Quarter: 2004Q2

REPORT INFORMATION
  Report Type: 
  Country: None (occurrence: None)
  Receive Date: 20040422
  Receipt Date: 20040416
  Transmission Date: 20050107
  Serious: Yes (Other)
  Sender: FDA-Public Use
  Company Number: 200410844BCC

PATIENT
  Age: 46 Year
  Sex: Male
  Weight: 117.9352 kg

DRUGS (1)
  1. ASPIRIN [Suspect]
     Indication: COORDINATION ABNORMAL
     Dosage: IRR, ORAL
     Route: 048
     Dates: start: 20021018, end: 20021021

REACTIONS (3)
  - BLOOD PRESSURE INCREASED [None]
  - COORDINATION ABNORMAL [None]
  - TRANSIENT ISCHAEMIC ATTACK [None]
